FAERS Safety Report 16745592 (Version 1)
Quarter: 2019Q3

REPORT INFORMATION
  Report Type: Spontaneous
  Country: US (occurrence: US)
  Receive Date: 20190827
  Receipt Date: 20190827
  Transmission Date: 20191005
  Serious: No
  Sender: FDA-Public Use
  Company Number: US-JNJFOC-20190830371

PATIENT
  Age: 25 Year
  Sex: Male
  Weight: 77.18 kg

DRUGS (2)
  1. XARELTO [Suspect]
     Active Substance: RIVAROXABAN
     Route: 048
     Dates: start: 2019, end: 20190823
  2. XARELTO [Suspect]
     Active Substance: RIVAROXABAN
     Indication: DEEP VEIN THROMBOSIS
     Route: 048
     Dates: start: 20190523, end: 2019

REACTIONS (2)
  - Adverse event [Unknown]
  - Product dose omission [Unknown]

NARRATIVE: CASE EVENT DATE: 2019
